FAERS Safety Report 5367543-8 (Version None)
Quarter: 2007Q2

REPORT INFORMATION
  Report Type: 
  Country: None (occurrence: None)
  Receive Date: 20070622
  Receipt Date: 20061116
  Transmission Date: 20071010
  Serious: No
  Sender: FDA-Public Use
  Company Number: US-ASTRAZENECA-2006UW24585

PATIENT
  Age: 6 Month
  Sex: Male
  Weight: 9.5 kg

DRUGS (1)
  1. PULMICORT RESPULES [Suspect]
     Route: 055
     Dates: start: 20061001

REACTIONS (2)
  - MUCOSAL DISCOLOURATION [None]
  - OVERDOSE [None]
